FAERS Safety Report 6998295-3 (Version None)
Quarter: 2010Q3

REPORT INFORMATION
  Report Type: 
  Country: None (occurrence: None)
  Receive Date: 20100920
  Receipt Date: 20100329
  Transmission Date: 20110219
  Serious: No
  Sender: FDA-Public Use
  Company Number: US-ASTRAZENECA-2010SE13764

PATIENT
  Sex: Male

DRUGS (9)
  1. SEROQUEL [Suspect]
     Indication: DEPRESSION
     Route: 048
     Dates: start: 20080101, end: 20100322
  2. SEROQUEL [Suspect]
     Indication: ANXIETY
     Route: 048
     Dates: start: 20080101, end: 20100322
  3. SEROQUEL [Suspect]
     Indication: SLEEP DISORDER
     Route: 048
     Dates: start: 20080101, end: 20100322
  4. SEROQUEL [Suspect]
     Route: 048
     Dates: start: 20100327
  5. SEROQUEL [Suspect]
     Route: 048
     Dates: start: 20100327
  6. SEROQUEL [Suspect]
     Route: 048
     Dates: start: 20100327
  7. MORPHINE [Concomitant]
     Indication: PAIN
  8. OXYCONTIN [Concomitant]
     Indication: PAIN
  9. AMBIEN [Concomitant]
     Indication: SLEEP DISORDER

REACTIONS (3)
  - DRUG DOSE OMISSION [None]
  - JOINT STIFFNESS [None]
  - PAIN [None]
